FAERS Safety Report 8485738-1 (Version None)
Quarter: 2012Q3

REPORT INFORMATION
  Report Type: 
  Country: None (occurrence: None)
  Receive Date: 20120703
  Receipt Date: 20120702
  Transmission Date: 20120928
  Serious: Yes (Other)
  Sender: FDA-Public Use
  Company Number: US-ROCHE-1083454

PATIENT
  Sex: Female

DRUGS (5)
  1. XELODA [Suspect]
     Indication: BREAST CANCER METASTATIC
     Route: 048
     Dates: start: 20110801
  2. LAPATINIB [Suspect]
     Dates: start: 20120301
  3. HERCEPTIN [Suspect]
     Indication: BREAST CANCER METASTATIC
     Route: 042
     Dates: start: 20110801, end: 20120101
  4. TAXOTERE [Suspect]
     Indication: BREAST CANCER METASTATIC
     Dates: start: 20120301
  5. LAPATINIB [Suspect]
     Indication: BREAST CANCER METASTATIC
     Dates: start: 20120301

REACTIONS (3)
  - DISEASE PROGRESSION [None]
  - PULMONARY OEDEMA [None]
  - DRUG INEFFECTIVE [None]
